FAERS Safety Report 6703061-X (Version None)
Quarter: 2010Q2

REPORT INFORMATION
  Report Type: 
  Country: None (occurrence: None)
  Receive Date: 20100427
  Receipt Date: 20100420
  Transmission Date: 20101027
  Serious: Yes (Death)
  Sender: FDA-Public Use
  Company Number: CERZ-1001109

PATIENT
  Age: 47 Year
  Sex: Female
  Weight: 51 kg

DRUGS (5)
  1. CEREZYME [Suspect]
     Indication: GAUCHER'S DISEASE
     Dosage: 4000 U, INTRAVENOUS
     Route: 042
     Dates: start: 19950203, end: 20100111
  2. MORPHINE [Concomitant]
  3. ACETYLCYSTEINE [Concomitant]
  4. ALPHAGAN [Concomitant]
  5. CANDESARTAN CILEXETIL [Concomitant]

REACTIONS (15)
  - ATELECTASIS [None]
  - CONDUCTIVE DEAFNESS [None]
  - COUGH [None]
  - DYSPNOEA [None]
  - EXTRINSIC VASCULAR COMPRESSION [None]
  - FEMUR FRACTURE [None]
  - GLAUCOMA [None]
  - HYPERTENSION [None]
  - MEDIASTINAL DISORDER [None]
  - METASTASES TO LUNG [None]
  - METASTASES TO LYMPH NODES [None]
  - OSTEOARTHRITIS [None]
  - OSTEOSARCOMA METASTATIC [None]
  - PERICARDIAL EFFUSION [None]
  - PNEUMOTHORAX [None]
